FAERS Safety Report 17804822 (Version 2)
Quarter: 2020Q3

REPORT INFORMATION
  Report Type: Report from Study
  Country: CA (occurrence: CA)
  Receive Date: 20200520
  Receipt Date: 20200831
  Transmission Date: 20201102
  Serious: Yes (Hospitalization)
  Sender: FDA-Public Use
  Company Number: CA-BEH-2020117344

PATIENT
  Sex: Male

DRUGS (3)
  1. HIZENTRA [Suspect]
     Active Substance: HUMAN IMMUNOGLOBULIN G
     Indication: IMMUNODEFICIENCY COMMON VARIABLE
     Dosage: 13 GRAM, QW
     Route: 058
     Dates: start: 20160406
  2. HUMAN IMMUNOGLOBULIN (INN) [Suspect]
     Active Substance: HUMAN IMMUNOGLOBULIN G
     Route: 065
  3. HIZENTRA [Suspect]
     Active Substance: HUMAN IMMUNOGLOBULIN G
     Indication: PRIMARY IMMUNODEFICIENCY SYNDROME
     Dosage: 13 GRAM, QW
     Route: 058
     Dates: start: 201510, end: 201906

REACTIONS (4)
  - Platelet disorder [Unknown]
  - Nerve injury [Recovering/Resolving]
  - Diplegia [Recovering/Resolving]
  - Wheelchair user [Recovering/Resolving]

NARRATIVE: CASE EVENT DATE: 201905
